FAERS Safety Report 4506663-4 (Version None)
Quarter: 2004Q4

REPORT INFORMATION
  Report Type: 
  Country: None (occurrence: None)
  Receive Date: 20041122
  Receipt Date: 20030605
  Transmission Date: 20050328
  Serious: Yes (Hospitalization, Disabling, Other)
  Sender: FDA-Public Use
  Company Number: US-MERCK-0306USA00795

PATIENT
  Age: 70 Year
  Sex: Female
  Weight: 90 kg

DRUGS (13)
  1. VIOXX [Suspect]
     Route: 048
  2. LEVOTHROID [Concomitant]
     Route: 065
  3. DIOVAN [Concomitant]
     Route: 065
  4. NIACIN [Concomitant]
     Route: 065
  5. PREMPRO [Concomitant]
     Route: 065
  6. TRICOR [Concomitant]
     Route: 065
  7. OS-CAL D [Concomitant]
     Route: 065
  8. POTASSIUM (UNSPECIFIED) [Concomitant]
     Route: 048
  9. TYLENOL [Concomitant]
     Route: 065
  10. AMBIEN [Concomitant]
     Route: 065
  11. DULCOLAX [Concomitant]
     Route: 065
  12. FLEXERIL [Concomitant]
     Route: 065
  13. DARVOCET-N 100 [Concomitant]
     Route: 065

REACTIONS (29)
  - ADVERSE EVENT [None]
  - ANAEMIA [None]
  - ANHEDONIA [None]
  - ARTHRALGIA [None]
  - CATARACT [None]
  - CHEST DISCOMFORT [None]
  - CHEST PAIN [None]
  - DEEP VEIN THROMBOSIS [None]
  - DEMENTIA [None]
  - DEPRESSIVE SYMPTOM [None]
  - DERMATITIS [None]
  - DYSPNOEA [None]
  - DYSPNOEA EXERTIONAL [None]
  - GASTRIC DISORDER [None]
  - HYPERTONIC BLADDER [None]
  - INTERVERTEBRAL DISC DEGENERATION [None]
  - LUMBAR RADICULOPATHY [None]
  - MYALGIA [None]
  - NERVE COMPRESSION [None]
  - OSTEOPOROSIS [None]
  - POLYTRAUMATISM [None]
  - RASH [None]
  - SCIATICA [None]
  - SKIN ULCER [None]
  - SPINAL CLAUDICATION [None]
  - SPINAL COMPRESSION FRACTURE [None]
  - THROMBOPHLEBITIS SUPERFICIAL [None]
  - VENOUS INSUFFICIENCY [None]
  - VERTIGO POSITIONAL [None]
